FAERS Safety Report 8906158 (Version 2)
Quarter: 2013Q1

REPORT INFORMATION
  Report Type: Spontaneous
  Country: FR (occurrence: None)
  Receive Date: 20121019
  Receipt Date: 20121106
  Transmission Date: 20140127
  Serious: Yes (Hospitalization, Other)
  Sender: FDA-Public Use
  Company Number: 2012033677

PATIENT
  Age: 57 Year
  Sex: Male

DRUGS (1)
  1. INTRAVENOUS IMMUNOGLOBULIN (IVIG) (IMMUNE GLOBULIN INTRAVENOUS (HUMAN) 10% LIQUID) [Suspect]
     Indication: GUILLAIN-BARRE SYNDROME

REACTIONS (11)
  - Allergic granulomatous angiitis [None]
  - Pyrexia [None]
  - Purpura [None]
  - Eosinophilia [None]
  - Drug ineffective [None]
  - Condition aggravated [None]
  - Sensorimotor disorder [None]
  - Arthralgia [None]
  - Sinusitis [None]
  - Bronchiolitis [None]
  - Drug ineffective [None]
